FAERS Safety Report 20491896 (Version 1)
Quarter: 2022Q1

REPORT INFORMATION
  Report Type: Spontaneous
  Country: MX (occurrence: MX)
  Receive Date: 20220218
  Receipt Date: 20220218
  Transmission Date: 20220423
  Serious: Yes (Hospitalization)
  Sender: FDA-Public Use
  Company Number: MX-NOVARTISPH-NVSC2022MX037304

PATIENT
  Sex: Female

DRUGS (1)
  1. GLIVEC [Suspect]
     Active Substance: IMATINIB MESYLATE
     Indication: Chronic myeloid leukaemia
     Dosage: 600 MG (6 X 100MG)
     Route: 065

REACTIONS (6)
  - Haemoglobin decreased [Unknown]
  - Toxicity to various agents [Unknown]
  - Suspected COVID-19 [Unknown]
  - Influenza [Unknown]
  - Fatigue [Unknown]
  - Tachycardia [Unknown]
